FAERS Safety Report 5059806-0 (Version None)
Quarter: 2006Q3

REPORT INFORMATION
  Report Type: 
  Country: None (occurrence: None)
  Receive Date: 20060724
  Receipt Date: 20060718
  Transmission Date: 20061208
  Serious: Yes (Hospitalization)
  Sender: FDA-Public Use
  Company Number: JP-JPN-A200602687

PATIENT
  Age: 72 Year
  Sex: Female

DRUGS (10)
  1. VALTREX [Suspect]
     Indication: HERPES ZOSTER
     Dosage: 1000MG PER DAY
     Route: 048
     Dates: start: 20060708, end: 20060710
  2. DIOVAN [Concomitant]
     Indication: HYPERTENSION
     Dosage: 2 PER DAY
     Route: 048
  3. MUCOSTA [Concomitant]
     Indication: GASTRITIS
     Dosage: 3 PER DAY
     Route: 048
  4. ALLOPURINOL [Concomitant]
     Indication: HYPERURICAEMIA
     Dosage: 1 PER DAY
     Route: 048
  5. ASPIRIN [Concomitant]
     Indication: ANGINA PECTORIS
     Dosage: 1 PER DAY
     Route: 048
  6. LASIX [Concomitant]
     Indication: RENAL FAILURE CHRONIC
     Dosage: 2 PER DAY
     Route: 048
  7. NORVASC [Concomitant]
     Indication: HYPERTENSION
     Dosage: 1 PER DAY
     Route: 048
  8. GASTER [Concomitant]
     Indication: GASTRIC ULCER
     Dosage: 1 PER DAY
     Route: 048
  9. TANKARU [Concomitant]
     Dosage: 3 PER DAY
     Route: 048
  10. LOXONIN [Concomitant]
     Route: 048

REACTIONS (3)
  - DEPRESSED LEVEL OF CONSCIOUSNESS [None]
  - DRUG TOXICITY [None]
  - HAEMODIALYSIS [None]
